FAERS Safety Report 19049784 (Version 5)
Quarter: 2021Q2

REPORT INFORMATION
  Report Type: Report from Study
  Country: US (occurrence: US)
  Receive Date: 20210323
  Receipt Date: 20210426
  Transmission Date: 20210717
  Serious: Yes (Hospitalization)
  Sender: FDA-Public Use
  Company Number: US-BIOGEN-2021BI00991507

PATIENT
  Age: 60 Year
  Sex: Female

DRUGS (6)
  1. VUMERITY [Suspect]
     Active Substance: DIROXIMEL FUMARATE
     Dosage: MAINTENANCE DOSE
     Route: 048
     Dates: start: 20210210
  2. VUMERITY [Suspect]
     Active Substance: DIROXIMEL FUMARATE
     Dosage: FOR 7 DAYS
     Route: 048
     Dates: start: 20210220
  3. VUMERITY [Suspect]
     Active Substance: DIROXIMEL FUMARATE
     Dosage: MAINTENANCE DOSE
     Route: 048
     Dates: start: 20210217
  4. VUMERITY [Suspect]
     Active Substance: DIROXIMEL FUMARATE
     Dosage: MAINTENANCE DOSE
     Route: 048
     Dates: start: 20210228
  5. VUMERITY [Suspect]
     Active Substance: DIROXIMEL FUMARATE
     Indication: MULTIPLE SCLEROSIS
     Dosage: STARTING DOSE
     Route: 048
  6. VUMERITY [Suspect]
     Active Substance: DIROXIMEL FUMARATE
     Route: 048
     Dates: start: 20210220

REACTIONS (16)
  - Vomiting [Unknown]
  - Asthenia [Not Recovered/Not Resolved]
  - Multiple sclerosis relapse [Unknown]
  - Erythema [Not Recovered/Not Resolved]
  - Muscular weakness [Not Recovered/Not Resolved]
  - Band sensation [Recovered/Resolved]
  - Cellulitis [Unknown]
  - Muscle spasms [Not Recovered/Not Resolved]
  - Motor dysfunction [Unknown]
  - Dyspepsia [Unknown]
  - Arthralgia [Not Recovered/Not Resolved]
  - Flushing [Not Recovered/Not Resolved]
  - Multiple sclerosis [Recovered/Resolved]
  - Uhthoff^s phenomenon [Unknown]
  - Pain in extremity [Unknown]
  - Musculoskeletal disorder [Not Recovered/Not Resolved]

NARRATIVE: CASE EVENT DATE: 202103
